FAERS Safety Report 25303047 (Version 1)
Quarter: 2025Q2

REPORT INFORMATION
  Report Type: Spontaneous
  Country: CA (occurrence: CA)
  Receive Date: 20250512
  Receipt Date: 20250512
  Transmission Date: 20250716
  Serious: Yes (Hospitalization, Other)
  Sender: TAKEDA
  Company Number: CA-TAKEDA-2025TUS043148

PATIENT
  Age: 19 Year
  Sex: Male

DRUGS (1)
  1. INTUNIV [Suspect]
     Active Substance: GUANFACINE HYDROCHLORIDE
     Indication: Autism spectrum disorder
     Dosage: 5 MILLIGRAM, QD

REACTIONS (5)
  - Head banging [Unknown]
  - Seizure [Unknown]
  - Insurance issue [Unknown]
  - Inability to afford medication [Unknown]
  - Aggression [Unknown]
